FAERS Safety Report 7434001-6 (Version None)
Quarter: 2011Q2

REPORT INFORMATION
  Report Type: 
  Country: None (occurrence: None)
  Receive Date: 20110421
  Receipt Date: 20110421
  Transmission Date: 20111010
  Serious: Yes (Hospitalization, Disabling, Other)
  Sender: FDA-Public Use
  Company Number: None

PATIENT
  Age: 17 Year
  Sex: Female
  Weight: 38.1022 kg

DRUGS (2)
  1. LEVAQUIN [Suspect]
     Indication: LOBAR PNEUMONIA
     Dosage: LEVAQUIN 500MG IV GIVEN ER; LEVAQUIN 500MG PILL
     Route: 042
     Dates: start: 20110221
  2. LEVAQUIN [Suspect]
     Indication: PLEURAL EFFUSION
     Dosage: LEVAQUIN 500MG IV GIVEN ER; LEVAQUIN 500MG PILL
     Route: 042
     Dates: start: 20110221

REACTIONS (4)
  - VOMITING [None]
  - ASCITES [None]
  - HEPATIC FAILURE [None]
  - PLEURAL EFFUSION [None]
